FAERS Safety Report 10095550 (Version 1)
Quarter: 2014Q2

REPORT INFORMATION
  Report Type: Spontaneous
  Country: CH (occurrence: CH)
  Receive Date: 20140422
  Receipt Date: 20140422
  Transmission Date: 20141212
  Serious: Yes (Hospitalization, Other)
  Sender: FDA-Public Use
  Company Number: US-ASTRAZENECA-2014SE26841

PATIENT
  Age: 58 Year
  Sex: Male
  Weight: 85 kg

DRUGS (32)
  1. MERONEM [Suspect]
     Indication: PNEUMONIA
     Dosage: SHORT TERM, 1G THREE TIMES A DAY
     Route: 041
     Dates: start: 20140307
  2. MORPHINE [Suspect]
     Indication: PRODUCT USED FOR UNKNOWN INDICATION
     Dosage: AS NECESSARY
     Route: 041
     Dates: start: 20140307, end: 20140307
  3. MORPHINE [Suspect]
     Indication: PRODUCT USED FOR UNKNOWN INDICATION
     Dosage: 1MG/H
     Route: 041
     Dates: start: 20140308, end: 20140310
  4. SYNAGIS [Suspect]
     Indication: RESPIRATORY SYNCYTIAL VIRUS INFECTION
     Route: 041
     Dates: start: 20140308, end: 20140308
  5. COPEGUS [Suspect]
     Indication: RHINOVIRUS INFECTION
     Dosage: SHORT TERM, 1200 MG , THREE TIMES A DAY
     Route: 048
     Dates: start: 20140226
  6. COPEGUS [Suspect]
     Indication: PNEUMONIA RESPIRATORY SYNCYTIAL VIRAL
     Dosage: SHORT TERM, 1200 MG , THREE TIMES A DAY
     Route: 048
     Dates: start: 20140226
  7. COPEGUS [Suspect]
     Indication: RHINOVIRUS INFECTION
     Dosage: SHORT TERM, 800 MG , THREE TIMES A DAY
     Route: 048
     Dates: start: 20140307
  8. COPEGUS [Suspect]
     Indication: PNEUMONIA RESPIRATORY SYNCYTIAL VIRAL
     Dosage: SHORT TERM, 800 MG , THREE TIMES A DAY
     Route: 048
     Dates: start: 20140307
  9. LYRICA [Suspect]
     Indication: PRODUCT USED FOR UNKNOWN INDICATION
     Dosage: 50 MG, THREE TIMES A DAY,  LONG TERM
     Route: 048
     Dates: end: 20140307
  10. SERESTA [Suspect]
     Indication: PRODUCT USED FOR UNKNOWN INDICATION
     Dosage: 15 MG, LONG TERM
     Route: 048
     Dates: end: 20140305
  11. SERESTA [Suspect]
     Indication: PRODUCT USED FOR UNKNOWN INDICATION
     Route: 065
     Dates: start: 20140308, end: 20140309
  12. TEMESTA [Suspect]
     Indication: PRODUCT USED FOR UNKNOWN INDICATION
     Route: 048
     Dates: start: 20140221
  13. TEMESTA [Suspect]
     Indication: PRODUCT USED FOR UNKNOWN INDICATION
     Route: 048
     Dates: start: 20140307, end: 20140308
  14. TEMESTA [Suspect]
     Indication: PRODUCT USED FOR UNKNOWN INDICATION
     Route: 048
     Dates: end: 20140309
  15. VFEND [Interacting]
     Indication: PNEUMONIA FUNGAL
     Route: 048
     Dates: start: 20140225, end: 20140226
  16. VFEND [Interacting]
     Indication: PNEUMONIA FUNGAL
     Route: 048
     Dates: start: 20140227, end: 20140311
  17. PROGRAF [Interacting]
     Indication: PROPHYLAXIS AGAINST TRANSPLANT REJECTION
     Dosage: LONG TERM, 0.5 MG , TWO TIMES A DAY
     Route: 048
     Dates: end: 20140306
  18. PROGRAF [Interacting]
     Indication: PROPHYLAXIS AGAINST TRANSPLANT REJECTION
     Route: 048
     Dates: start: 20140307
  19. PROGRAF [Interacting]
     Indication: PROPHYLAXIS AGAINST TRANSPLANT REJECTION
     Dosage: NORMALISIED AGAIN
     Route: 048
     Dates: start: 20140309
  20. PREDNISONE [Interacting]
     Indication: PRODUCT USED FOR UNKNOWN INDICATION
     Dosage: LONG TERM, 5 MG EVERY DAY
     Route: 048
  21. TRAMAL [Interacting]
     Indication: PRODUCT USED FOR UNKNOWN INDICATION
     Dosage: LONG TERM, 62.5 MG, THREE TIMES A DAY
     Route: 065
  22. TRAMAL [Interacting]
     Indication: PRODUCT USED FOR UNKNOWN INDICATION
     Dosage: 50-62.5MG, 1-4 TIMES PER DAY
     Route: 065
     Dates: start: 20140221, end: 20140307
  23. CELLCEPT [Concomitant]
     Indication: PRODUCT USED FOR UNKNOWN INDICATION
     Dosage: LONG TERM, 1000 MG TWO TIMES A DAY
     Route: 048
     Dates: end: 20140221
  24. CELLCEPT [Concomitant]
     Indication: PRODUCT USED FOR UNKNOWN INDICATION
     Route: 048
     Dates: start: 20140228
  25. LISTRIL [Concomitant]
     Indication: PRODUCT USED FOR UNKNOWN INDICATION
     Dosage: LONG TERM, 15 MG EVERY DAY
     Route: 048
     Dates: end: 20140307
  26. AMLODIPINE [Concomitant]
     Indication: PRODUCT USED FOR UNKNOWN INDICATION
     Dosage: LONG TERM, 10 MG EVERY DAY
     Route: 048
  27. ASPIRINE [Concomitant]
     Indication: PRODUCT USED FOR UNKNOWN INDICATION
     Dosage: LONG TERM, 100 MG EVERY DAY
     Route: 048
  28. JANUMET [Concomitant]
     Indication: PRODUCT USED FOR UNKNOWN INDICATION
     Dosage: LONG TERM, 500 MG TWO TIMES A DAY
     Route: 048
     Dates: end: 20140307
  29. INSULINE [Concomitant]
     Indication: PRODUCT USED FOR UNKNOWN INDICATION
     Dosage: ACCORDING TO GLYCEMIA, LONG TERM
     Route: 058
  30. PANTOZOL [Concomitant]
     Indication: PRODUCT USED FOR UNKNOWN INDICATION
     Dosage: LONG TERM, 40 MG , TWO TIMES A DAY
     Route: 048
     Dates: end: 20140307
  31. ESOMEPRAZOLE [Concomitant]
     Indication: PRODUCT USED FOR UNKNOWN INDICATION
     Dosage: LONG TERM, 40 MG EVERY DAY
     Route: 048
  32. NADIR [Concomitant]
     Indication: PRODUCT USED FOR UNKNOWN INDICATION

REACTIONS (9)
  - Confusional state [Recovering/Resolving]
  - Withdrawal syndrome [Recovering/Resolving]
  - Aggression [Recovering/Resolving]
  - Renal impairment [Unknown]
  - Potentiating drug interaction [Unknown]
  - Respiratory failure [Unknown]
  - Agitation [Unknown]
  - Blood creatinine increased [Unknown]
  - Underdose [Recovered/Resolved]
